FAERS Safety Report 20429604 (Version 1)
Quarter: 2022Q1

REPORT INFORMATION
  Report Type: Report from Study
  Country: FR (occurrence: FR)
  Receive Date: 20220204
  Receipt Date: 20220204
  Transmission Date: 20220424
  Serious: Yes (Hospitalization)
  Sender: FDA-Public Use
  Company Number: FR-SERVIER-S19006405

PATIENT

DRUGS (5)
  1. PEGASPARGASE [Suspect]
     Active Substance: PEGASPARGASE
     Indication: Acute lymphocytic leukaemia
     Dosage: 725.5 IU  D8
     Dates: start: 20190422, end: 20190422
  2. TN UNSPECIFIED [Concomitant]
     Indication: Acute lymphocytic leukaemia
     Dosage: 0.8 MG, D1, D9
     Route: 042
     Dates: start: 20190415
  3. TN UNSPECIFIED [Concomitant]
     Indication: Acute lymphocytic leukaemia
     Dosage: 10 MG, D2
     Route: 037
     Dates: start: 20190416
  4. TN UNSPECIFIED [Concomitant]
     Indication: Acute lymphocytic leukaemia
     Dosage: 3.5 MG, D1, D5
     Route: 048
     Dates: start: 20190415, end: 20190419
  5. TN  UNSPECIFIED [Concomitant]
     Indication: Acute lymphocytic leukaemia
     Dosage: 28 MG, QD
     Dates: start: 20190415, end: 20190421

REACTIONS (4)
  - Hypersensitivity [Recovered/Resolved]
  - Vomiting [Recovered/Resolved]
  - Pruritus [Recovered/Resolved]
  - Lip oedema [Recovered/Resolved]

NARRATIVE: CASE EVENT DATE: 20190422
